FAERS Safety Report 4382602-4 (Version None)
Quarter: 2004Q2

REPORT INFORMATION
  Report Type: 
  Country: None (occurrence: None)
  Receive Date: 20040617
  Receipt Date: 20040609
  Transmission Date: 20050107
  Serious: Yes (Hospitalization)
  Sender: FDA-Public Use
  Company Number: 2004214314JP

PATIENT
  Age: 4 Year
  Sex: Male
  Weight: 15 kg

DRUGS (2)
  1. CLINDAMYCIN HCL [Suspect]
     Indication: LYMPHADENITIS
     Dosage: 450 MG, DAILY, IV
     Route: 042
     Dates: start: 20040417, end: 20040426
  2. PENTICILLIN (PIPERACILLIN SODIUM) SOLUTION, STERILE [Suspect]
     Indication: LYMPHADENITIS
     Dosage: 500 MG, TID, IV
     Route: 042
     Dates: start: 20040413, end: 20040426

REACTIONS (1)
  - EXANTHEM [None]
